FAERS Safety Report 24202346 (Version 2)
Quarter: 2024Q3

REPORT INFORMATION
  Report Type: Report from Study
  Country: JP (occurrence: JP)
  Receive Date: 20240812
  Receipt Date: 20240830
  Transmission Date: 20241017
  Serious: Yes (Other)
  Sender: TAKEDA
  Company Number: JP-TAKEDA-2023TUS095113

PATIENT
  Age: 8 Year
  Sex: Male
  Weight: 26.4 kg

DRUGS (14)
  1. LISDEXAMFETAMINE DIMESYLATE [Suspect]
     Active Substance: LISDEXAMFETAMINE DIMESYLATE
     Indication: Attention deficit hyperactivity disorder
     Dosage: 20 MILLIGRAM, QD
     Route: 048
     Dates: start: 20220805, end: 20230822
  2. LISDEXAMFETAMINE DIMESYLATE [Suspect]
     Active Substance: LISDEXAMFETAMINE DIMESYLATE
     Dosage: 40 MILLIGRAM, QD
     Route: 048
     Dates: start: 20230823, end: 20240508
  3. LISDEXAMFETAMINE DIMESYLATE [Suspect]
     Active Substance: LISDEXAMFETAMINE DIMESYLATE
     Dosage: 50 MILLIGRAM, QD
     Route: 048
     Dates: start: 20240509
  4. INTUNIV [Suspect]
     Active Substance: GUANFACINE HYDROCHLORIDE
     Indication: Attention deficit hyperactivity disorder
     Dosage: 0.75 MILLIGRAM
     Route: 065
     Dates: end: 20230329
  5. INTUNIV [Suspect]
     Active Substance: GUANFACINE HYDROCHLORIDE
     Dosage: 1 MILLIGRAM
     Route: 065
     Dates: start: 20230330, end: 20230823
  6. INTUNIV [Suspect]
     Active Substance: GUANFACINE HYDROCHLORIDE
     Dosage: 1.5 MILLIGRAM
     Route: 065
     Dates: start: 20230824
  7. ABILIFY [Concomitant]
     Active Substance: ARIPIPRAZOLE
     Dosage: 12 MILLIGRAM
     Route: 065
     Dates: end: 20230407
  8. ABILIFY [Concomitant]
     Active Substance: ARIPIPRAZOLE
     Dosage: 18 MILLIGRAM
     Route: 065
     Dates: start: 20230408, end: 20230607
  9. ABILIFY [Concomitant]
     Active Substance: ARIPIPRAZOLE
     Dosage: 15 MILLIGRAM
     Route: 065
     Dates: start: 20230608, end: 20230702
  10. ABILIFY [Concomitant]
     Active Substance: ARIPIPRAZOLE
     Dosage: 18 MILLIGRAM
     Route: 065
     Dates: start: 20230703, end: 20230830
  11. ABILIFY [Concomitant]
     Active Substance: ARIPIPRAZOLE
     Dosage: 6 MILLIGRAM
     Route: 065
     Dates: start: 20230831, end: 20230927
  12. ABILIFY [Concomitant]
     Active Substance: ARIPIPRAZOLE
     Dosage: 3 MILLIGRAM
     Route: 065
     Dates: start: 20230928
  13. STRATTERA [Concomitant]
     Active Substance: ATOMOXETINE HYDROCHLORIDE
     Indication: Attention deficit hyperactivity disorder
     Dosage: 30 MILLIGRAM
     Route: 065
     Dates: end: 20230111
  14. STRATTERA [Concomitant]
     Active Substance: ATOMOXETINE HYDROCHLORIDE
     Dosage: 20 MILLIGRAM
     Route: 065
     Dates: start: 20230112, end: 20230208

REACTIONS (4)
  - Autism spectrum disorder [Recovering/Resolving]
  - Insomnia [Recovering/Resolving]
  - Wrong technique in product usage process [Unknown]
  - Underdose [Unknown]

NARRATIVE: CASE EVENT DATE: 20230403
